FAERS Safety Report 7808711-2 (Version None)
Quarter: 2011Q4

REPORT INFORMATION
  Report Type: 
  Country: None (occurrence: None)
  Receive Date: 20111012
  Receipt Date: 20111011
  Transmission Date: 20120403
  Serious: Yes (Death, Hospitalization, Other)
  Sender: FDA-Public Use
  Company Number: US-ASTRAZENECA-2010SE09195

PATIENT
  Age: 9273 Day
  Sex: Male

DRUGS (11)
  1. TENORMIN [Concomitant]
     Indication: BLOOD PRESSURE
     Route: 048
     Dates: start: 20070720
  2. RESTORIL [Concomitant]
     Indication: INSOMNIA
     Dosage: 30 MG, 1 CAPSULE ORAL HS PRN
     Route: 048
     Dates: start: 20070722
  3. TYLENOL-500 [Concomitant]
     Indication: HEADACHE
     Dosage: 325 MG, 2 TABLET ORAL Q 4 HR PRN
     Route: 048
     Dates: start: 20070715
  4. TYLENOL-500 [Concomitant]
     Indication: PAIN
     Dosage: 325 MG, 2 TABLET ORAL Q 4 HR PRN
     Route: 048
     Dates: start: 20070715
  5. SEROQUEL [Suspect]
     Indication: SCHIZOPHRENIA
     Route: 048
     Dates: start: 20031101
  6. RISPERIDONE [Suspect]
     Dates: start: 20090223
  7. ATIVAN [Concomitant]
     Indication: AGITATION
     Dosage: 2 MG, 1 TABLET ORAL Q 6H PRN
     Route: 048
     Dates: start: 20070722
  8. SEROQUEL [Suspect]
     Dosage: 100 MG TO 800 MG
     Route: 048
     Dates: start: 20040101
  9. SEROQUEL [Suspect]
     Route: 048
     Dates: start: 20070715
  10. SEROQUEL [Suspect]
     Dosage: 300 MG, 1 TABLET ORAL BID AND HS
     Route: 048
     Dates: start: 20070721
  11. AMBIEN [Concomitant]

REACTIONS (12)
  - PNEUMONIA [None]
  - PERICARDIAL EFFUSION [None]
  - PULMONARY CONGESTION [None]
  - CARDIOMYOPATHY [None]
  - PLEURAL EFFUSION [None]
  - DECREASED APPETITE [None]
  - HEPATIC ENZYME INCREASED [None]
  - ASTHENIA [None]
  - CONGESTIVE CARDIOMYOPATHY [None]
  - LOSS OF CONSCIOUSNESS [None]
  - SCHIZOPHRENIA [None]
  - PULMONARY OEDEMA [None]
